FAERS Safety Report 4269527-X (Version None)
Quarter: 2004Q1

REPORT INFORMATION
  Report Type: 
  Country: None (occurrence: None)
  Receive Date: 20040113
  Receipt Date: 20031230
  Transmission Date: 20041129
  Serious: Yes (Hospitalization)
  Sender: FDA-Public Use
  Company Number: PHBS2003CL14566

PATIENT
  Age: 10 Year
  Sex: Female

DRUGS (1)
  1. LEPONEX [Suspect]
     Indication: MEDICATION ERROR
     Route: 048

REACTIONS (20)
  - ABASIA [None]
  - ACCIDENTAL EXPOSURE [None]
  - ACCIDENTAL OVERDOSE [None]
  - AGGRESSION [None]
  - AGITATION [None]
  - CONFUSIONAL STATE [None]
  - DEPRESSED LEVEL OF CONSCIOUSNESS [None]
  - DISORIENTATION [None]
  - DYSARTHRIA [None]
  - GLASGOW COMA SCALE ABNORMAL [None]
  - HALLUCINATION, VISUAL [None]
  - HYPOREFLEXIA [None]
  - HYPOTHERMIA [None]
  - HYPOTONIA [None]
  - IRRITABILITY [None]
  - MIOSIS [None]
  - RESPIRATORY RATE INCREASED [None]
  - SINUS TACHYCARDIA [None]
  - SOMNOLENCE [None]
  - STUPOR [None]
